FAERS Safety Report 10972639 (Version 5)
Quarter: 2019Q4

REPORT INFORMATION
  Report Type: Spontaneous
  Country: US (occurrence: US)
  Receive Date: 20150331
  Receipt Date: 20191203
  Transmission Date: 20200122
  Serious: No
  Sender: FDA-Public Use
  Company Number: US-JNJFOC-20131210500

PATIENT
  Age: 12 Year
  Sex: Male

DRUGS (8)
  1. RISPERDAL [Suspect]
     Active Substance: RISPERIDONE
     Indication: AGGRESSION
     Route: 048
     Dates: start: 2011, end: 2013
  2. CLONIDINE. [Concomitant]
     Active Substance: CLONIDINE
     Indication: PSYCHOTIC DISORDER
     Route: 065
     Dates: start: 201006, end: 201308
  3. RISPERDAL [Suspect]
     Active Substance: RISPERIDONE
     Indication: AUTISM SPECTRUM DISORDER
  4. FLUVOXAMINE [Concomitant]
     Active Substance: FLUVOXAMINE
     Route: 065
     Dates: start: 201004
  5. RISPERDAL [Suspect]
     Active Substance: RISPERIDONE
     Indication: AGGRESSION
     Route: 048
     Dates: start: 2010
  6. RISPERDAL [Suspect]
     Active Substance: RISPERIDONE
     Dosage: VARYING DOSES OF 0.25 MG AND 0.50 MG.
     Route: 048
  7. RISPERDAL [Suspect]
     Active Substance: RISPERIDONE
     Indication: AGGRESSION
     Route: 048
  8. LORAZEPAM. [Concomitant]
     Active Substance: LORAZEPAM
     Route: 065
     Dates: start: 201005

REACTIONS (5)
  - Gynaecomastia [Unknown]
  - Obesity [Unknown]
  - Increased appetite [Unknown]
  - Emotional distress [Unknown]
  - Dyskinesia [Unknown]

NARRATIVE: CASE EVENT DATE: 2011
